FAERS Safety Report 23924566 (Version 3)
Quarter: 2024Q3

REPORT INFORMATION
  Report Type: Spontaneous
  Country: FR (occurrence: FR)
  Receive Date: 20240531
  Receipt Date: 20240712
  Transmission Date: 20241016
  Serious: No
  Sender: PFIZER
  Company Number: FR-PFIZER INC-202400172196

PATIENT
  Sex: Female

DRUGS (1)
  1. RETACRIT [Suspect]
     Active Substance: EPOETIN ALFA-EPBX
     Dosage: UNK

REACTIONS (1)
  - Device issue [Unknown]
